FAERS Safety Report 6718609-9 (Version None)
Quarter: 2010Q2

REPORT INFORMATION
  Report Type: 
  Country: None (occurrence: None)
  Receive Date: 20100510
  Receipt Date: 20100430
  Transmission Date: 20101027
  Serious: Yes (Other)
  Sender: FDA-Public Use
  Company Number: US-MERCK-0708USA00297

PATIENT
  Age: 56 Year
  Sex: Female
  Weight: 73 kg

DRUGS (4)
  1. FOSAMAX [Suspect]
     Indication: OSTEOPOROSIS
     Route: 048
     Dates: start: 20040320, end: 20040620
  2. FOSAMAX [Suspect]
     Route: 048
     Dates: start: 20060411, end: 20060711
  3. FOSAMAX [Suspect]
     Route: 048
     Dates: start: 20060803, end: 20060903
  4. FOSAMAX PLUS D [Suspect]
     Indication: OSTEOPOROSIS
     Route: 065
     Dates: start: 20060803, end: 20060803

REACTIONS (30)
  - ANXIETY [None]
  - ATROPHY [None]
  - BIOPSY BREAST [None]
  - COMPLEX PARTIAL SEIZURES [None]
  - CONFUSIONAL STATE [None]
  - CONTUSION [None]
  - DENTAL CARIES [None]
  - DEPRESSION [None]
  - DIZZINESS [None]
  - EMOTIONAL DISORDER [None]
  - EPULIS [None]
  - FALL [None]
  - HYPERSENSITIVITY [None]
  - HYPOAESTHESIA ORAL [None]
  - ILLUSION [None]
  - IMPAIRED HEALING [None]
  - LOSS OF CONSCIOUSNESS [None]
  - MULTIPLE ALLERGIES [None]
  - ORAL DISORDER [None]
  - ORAL INFECTION [None]
  - OSTEOARTHRITIS [None]
  - OSTEONECROSIS OF JAW [None]
  - OSTEOPENIA [None]
  - OTITIS MEDIA [None]
  - PARAESTHESIA [None]
  - POLYNEUROPATHY [None]
  - SINUSITIS [None]
  - TOOTH DISORDER [None]
  - TRANSIENT ISCHAEMIC ATTACK [None]
  - WRIST FRACTURE [None]
